FAERS Safety Report 5313660-8 (Version None)
Quarter: 2007Q2

REPORT INFORMATION
  Report Type: 
  Country: None (occurrence: None)
  Receive Date: 20070425
  Receipt Date: 20070215
  Transmission Date: 20071010
  Serious: Yes (Other)
  Sender: FDA-Public Use
  Company Number: BR-GDP-0613621

PATIENT
  Age: 42 Year
  Sex: Female
  Weight: 52 kg

DRUGS (4)
  1. TRI-LUMA [Suspect]
     Indication: CHLOASMA
     Dosage: 1 APP QD; TP
     Route: 061
     Dates: start: 20060815, end: 20060830
  2. SUN BATH PROTECTIVE TANNING LOTION [Concomitant]
  3. METICORTEN [Concomitant]
  4. SUN BATH PROTECTIVE TANNING LOTION [Concomitant]

REACTIONS (3)
  - DRUG HYPERSENSITIVITY [None]
  - POST INFLAMMATORY PIGMENTATION CHANGE [None]
  - SKIN BURNING SENSATION [None]
